FAERS Safety Report 13010542 (Version 3)
Quarter: 2018Q2

REPORT INFORMATION
  Report Type: Report from Study
  Country: AR (occurrence: AR)
  Receive Date: 20161208
  Receipt Date: 20180521
  Transmission Date: 20180711
  Serious: Yes (Other)
  Sender: FDA-Public Use
  Company Number: AR-GLAXOSMITHKLINE-AR2016180883

PATIENT
  Age: 32 Year
  Sex: Female
  Weight: 61.5 kg

DRUGS (1)
  1. BELIMUMAB [Suspect]
     Active Substance: BELIMUMAB
     Indication: SYSTEMIC LUPUS ERYTHEMATOSUS
     Dosage: 10 MG/KG, CYC
     Route: 042
     Dates: start: 20151209, end: 20160720

REACTIONS (1)
  - Post abortion haemorrhage [Recovered/Resolved]

NARRATIVE: CASE EVENT DATE: 20160909
